FAERS Safety Report 7955678-2 (Version None)
Quarter: 2011Q4

REPORT INFORMATION
  Report Type: 
  Country: None (occurrence: None)
  Receive Date: 20111204
  Receipt Date: 20111116
  Transmission Date: 20120403
  Serious: No
  Sender: FDA-Public Use
  Company Number: US-ALLERGAN-1115069US

PATIENT
  Age: 58 Year
  Sex: Female

DRUGS (8)
  1. TOPAMAX [Concomitant]
     Dosage: 100 MG, BID
  2. ZESTRIL [Concomitant]
     Indication: HYPERTENSION
     Dosage: 5 MG, BID
  3. METFORMIN HCL [Concomitant]
     Indication: DIABETES MELLITUS
     Dosage: 500 MG, BID
  4. ACZONE [Suspect]
     Indication: ACNE
     Dosage: UNK
     Route: 061
     Dates: start: 20110816
  5. ORACEA [Concomitant]
     Indication: ROSACEA
     Dosage: UNK
     Dates: start: 20110816
  6. FINACEA [Concomitant]
  7. LYRICA [Concomitant]
     Indication: FIBROMYALGIA
  8. METRONIDAZOLE [Concomitant]

REACTIONS (2)
  - NAUSEA [None]
  - VOMITING [None]
